FAERS Safety Report 5480097-0 (Version None)
Quarter: 2007Q4

REPORT INFORMATION
  Report Type: 
  Country: None (occurrence: None)
  Receive Date: 20071009
  Receipt Date: 20070928
  Transmission Date: 20080405
  Serious: Yes (Other)
  Sender: FDA-Public Use
  Company Number: US-JNJFOC-20071000199

PATIENT
  Sex: Male
  Weight: 90.72 kg

DRUGS (19)
  1. REMICADE [Suspect]
     Indication: CROHN'S DISEASE
     Route: 042
  2. REMICADE [Suspect]
     Indication: PSORIATIC ARTHROPATHY
     Route: 042
  3. REMICADE [Suspect]
     Indication: ANKYLOSING SPONDYLITIS
     Dosage: 30 INFUSIONS
     Route: 042
  4. PREDNISONE [Concomitant]
     Indication: PSORIATIC ARTHROPATHY
  5. PREDNISONE [Concomitant]
     Indication: ANKYLOSING SPONDYLITIS
  6. METHOTREXATE [Concomitant]
     Indication: PSORIATIC ARTHROPATHY
  7. METHOTREXATE [Concomitant]
     Indication: ANKYLOSING SPONDYLITIS
  8. FOSAMAX [Concomitant]
     Indication: OSTEOPOROSIS
  9. FOLIC ACID [Concomitant]
  10. PURINTHOL [Concomitant]
  11. PROZAC [Concomitant]
  12. NEXIUM [Concomitant]
  13. UROCIT-K [Concomitant]
  14. MULTI-VITAMIN [Concomitant]
  15. CITRACAL-D [Concomitant]
     Indication: OSTEOPOROSIS
  16. NIACIN [Concomitant]
  17. TRICOR [Concomitant]
  18. FERROUS SULFATE TAB [Concomitant]
  19. TAMIFLU [Concomitant]

REACTIONS (5)
  - BLOOD TRIGLYCERIDES INCREASED [None]
  - HEPATIC ENZYME INCREASED [None]
  - ILEAL STENOSIS [None]
  - INFLUENZA [None]
  - LYMPHOMA [None]
